FAERS Safety Report 9885678 (Version 2)
Quarter: 2017Q4

REPORT INFORMATION
  Report Type: Spontaneous
  Country: FR (occurrence: FR)
  Receive Date: 20140210
  Receipt Date: 20171228
  Transmission Date: 20180321
  Serious: Yes (Hospitalization, Other)
  Sender: FDA-Public Use
  Company Number: FR-PFIZER INC-2014033857

PATIENT
  Age: 64 Year
  Sex: Male
  Weight: 89 kg

DRUGS (7)
  1. SOLU-MEDROL [Suspect]
     Active Substance: METHYLPREDNISOLONE SODIUM SUCCINATE
     Indication: PREMEDICATION
     Dosage: DOSAGE ACCORDING TO CYCLE
     Route: 042
     Dates: start: 20131127
  2. DOXYCYCLINE. [Suspect]
     Active Substance: DOXYCYCLINE
     Indication: SKIN TOXICITY
  3. POLARAMINE [Concomitant]
     Active Substance: DEXCHLORPHENIRAMINE MALEATE
     Indication: PREMEDICATION
     Dosage: UNK
     Dates: start: 20131127, end: 20131204
  4. SOLU-MEDROL [Suspect]
     Active Substance: METHYLPREDNISOLONE SODIUM SUCCINATE
     Dosage: DOSAGE ACCORDING TO CYCLE
     Route: 042
     Dates: start: 20131204, end: 20131204
  5. ERBITUX [Suspect]
     Active Substance: CETUXIMAB
     Indication: OROPHARYNGEAL CANCER
     Dosage: 400 MG/KG, CYCLIC (DOSAGE ACCORDING TO CYCLE)
     Route: 041
     Dates: start: 20131127
  6. DOXYCYCLINE. [Suspect]
     Active Substance: DOXYCYCLINE
     Indication: ANTIBIOTIC PROPHYLAXIS
     Dosage: 100 MG, 1X/DAY
     Route: 042
     Dates: start: 20131127, end: 20131204
  7. ERBITUX [Suspect]
     Active Substance: CETUXIMAB
     Dosage: 415 MG, CYCLIC (DOSAGE ACCORDING TO CYCLE)
     Route: 041
     Dates: start: 20131204, end: 20131204

REACTIONS (4)
  - Septic shock [Recovered/Resolved]
  - Diarrhoea haemorrhagic [Recovered/Resolved]
  - Clostridial infection [Unknown]
  - Pneumatosis intestinalis [Unknown]

NARRATIVE: CASE EVENT DATE: 20131204
